FAERS Safety Report 7096829-4 (Version None)
Quarter: 2010Q4

REPORT INFORMATION
  Report Type: 
  Country: None (occurrence: None)
  Receive Date: 20101111
  Receipt Date: 20101101
  Transmission Date: 20110411
  Serious: Yes (Hospitalization, Other)
  Sender: FDA-Public Use
  Company Number: US-ROCHE-718645

PATIENT
  Sex: Female
  Weight: 61.2 kg

DRUGS (4)
  1. ACCUTANE [Suspect]
     Indication: ACNE
     Route: 065
     Dates: start: 19930301, end: 19950301
  2. ACETAMINOPHEN [Concomitant]
  3. CONTRACEPTIVE [Concomitant]
  4. CONTRACEPTIVE [Concomitant]
     Dosage: REPORTED AS ^BIRTH CONTROL^ MEDICATION

REACTIONS (9)
  - CROHN'S DISEASE [None]
  - DEPRESSION [None]
  - FISTULA [None]
  - GASTROINTESTINAL INJURY [None]
  - ILEITIS [None]
  - INFLAMMATORY BOWEL DISEASE [None]
  - INTESTINAL OBSTRUCTION [None]
  - INTESTINAL PERFORATION [None]
  - SUICIDAL IDEATION [None]
